FAERS Safety Report 5489033-4 (Version None)
Quarter: 2007Q4

REPORT INFORMATION
  Report Type: 
  Country: None (occurrence: None)
  Receive Date: 20071017
  Receipt Date: 20071010
  Transmission Date: 20080405
  Serious: Yes (Other)
  Sender: FDA-Public Use
  Company Number: GB-ABBOTT-07P-167-0420409-00

PATIENT
  Sex: Female

DRUGS (5)
  1. REDUCTIL 10MG [Suspect]
     Indication: WEIGHT CONTROL
     Dates: start: 20060707, end: 20070724
  2. SERTRALINE [Concomitant]
     Indication: DEPRESSION
     Dates: start: 20051121, end: 20060801
  3. LORATADINE [Concomitant]
     Indication: DRUG USE FOR UNKNOWN INDICATION
     Dates: start: 20060606
  4. FLUCLOXACILLIN [Concomitant]
     Indication: ARTHROPOD BITE
     Dates: start: 20060606
  5. IBUPROFEN [Concomitant]
     Indication: ARTHRALGIA
     Dates: start: 20060424, end: 20060501

REACTIONS (3)
  - ASTHMA [None]
  - CHEST PAIN [None]
  - DYSPNOEA [None]
